FAERS Safety Report 21722377 (Version 2)
Quarter: 2022Q4

REPORT INFORMATION
  Report Type: Spontaneous
  Country: CA (occurrence: CA)
  Receive Date: 20221213
  Receipt Date: 20221227
  Transmission Date: 20230113
  Serious: Yes (Death)
  Sender: FDA-Public Use
  Company Number: CA-PFIZER INC-202201159309

PATIENT
  Age: 68 Year
  Sex: Female
  Weight: 48.08 kg

DRUGS (1)
  1. ABRILADA [Suspect]
     Active Substance: ADALIMUMAB-AFZB
     Indication: Crohn^s disease
     Dosage: 1 DF,WEEK 0: 160MGWEEK 2: 80MG 40MG EOW STARTING WEEK 4
     Route: 058
     Dates: start: 20220615

REACTIONS (4)
  - Liver disorder [Fatal]
  - Weight decreased [Recovering/Resolving]
  - Fatigue [Recovering/Resolving]
  - Loss of personal independence in daily activities [Unknown]

NARRATIVE: CASE EVENT DATE: 20220101
